FAERS Safety Report 5334628-1 (Version None)
Quarter: 2007Q2

REPORT INFORMATION
  Report Type: 
  Country: None (occurrence: None)
  Receive Date: 20070525
  Receipt Date: 20070523
  Transmission Date: 20071010
  Serious: Yes (Hospitalization)
  Sender: FDA-Public Use
  Company Number: A0652610A

PATIENT
  Sex: Female

DRUGS (5)
  1. AVANDAMET [Suspect]
     Dosage: 1TAB TWICE PER DAY
     Route: 048
  2. COZAAR [Concomitant]
  3. LIPITOR [Concomitant]
  4. VERAPAMIL [Concomitant]
  5. SYNTHROID [Concomitant]

REACTIONS (4)
  - BLOOD CHOLESTEROL INCREASED [None]
  - DIARRHOEA [None]
  - FLUID RETENTION [None]
  - HEART RATE IRREGULAR [None]
